FAERS Safety Report 16295975 (Version 1)
Quarter: 2019Q2

REPORT INFORMATION
  Report Type: Spontaneous
  Country: US (occurrence: US)
  Receive Date: 20190404
  Receipt Date: 20190404
  Transmission Date: 20190711
  Serious: No
  Sender: FDA-Public Use
  Company Number: None

PATIENT
  Age: 68 Year
  Sex: Female
  Weight: 51.26 kg

DRUGS (4)
  1. B TOTAL [Concomitant]
  2. DALFAMPRIDINE. [Suspect]
     Active Substance: DALFAMPRIDINE
     Indication: GAIT DISTURBANCE
     Dosage: ?          QUANTITY:1 DF DOSAGE FORM;?
     Route: 048
     Dates: start: 20181127, end: 20190226
  3. CHEWABLE CALCIUM [Concomitant]
  4. BIOTIN [Concomitant]
     Active Substance: BIOTIN

REACTIONS (6)
  - Rash pruritic [None]
  - Gait disturbance [None]
  - Balance disorder [None]
  - Visual impairment [None]
  - Hair texture abnormal [None]
  - Condition aggravated [None]

NARRATIVE: CASE EVENT DATE: 20181127
